FAERS Safety Report 4898560-X (Version None)
Quarter: 2006Q1

REPORT INFORMATION
  Report Type: 
  Country: None (occurrence: None)
  Receive Date: 20060130
  Receipt Date: 20060118
  Transmission Date: 20060701
  Serious: Yes (Hospitalization)
  Sender: FDA-Public Use
  Company Number: 220344

PATIENT
  Age: 57 Year
  Sex: Male

DRUGS (12)
  1. AVASTIN [Suspect]
     Indication: CLEAR CELL CARCINOMA OF THE KIDNEY
     Dosage: 5 MG/KG, Q2W, INTRAVENOUS
     Route: 042
     Dates: start: 20050101
  2. GEMCITABINE (GEMCITABINE HYDROCHLORIDE) [Suspect]
  3. TOPROL-XL [Concomitant]
  4. NORVASC [Concomitant]
  5. DIOVAN [Concomitant]
  6. KLONOPIN [Concomitant]
  7. REMERON [Concomitant]
  8. ATIVAN [Concomitant]
  9. ASPIRIN [Concomitant]
  10. ACTOS [Concomitant]
  11. INTERFERON (INTERFERON) [Concomitant]
  12. CISPLATIN [Concomitant]

REACTIONS (7)
  - GLOMERULONEPHRITIS [None]
  - GLUCOSE URINE PRESENT [None]
  - HAEMATOCRIT DECREASED [None]
  - HAEMOGLOBIN DECREASED [None]
  - HYPERTENSION [None]
  - RENAL FAILURE ACUTE [None]
  - TRANSIENT ISCHAEMIC ATTACK [None]
